FAERS Safety Report 20123003 (Version 1)
Quarter: 2021Q4

REPORT INFORMATION
  Report Type: Spontaneous
  Country: US (occurrence: US)
  Receive Date: 20211129
  Receipt Date: 20211129
  Transmission Date: 20220303
  Serious: No
  Sender: FDA-Public Use
  Company Number: US-JNJFOC-20211151687

PATIENT
  Sex: Female

DRUGS (1)
  1. SPRAVATO [Suspect]
     Active Substance: ESKETAMINE
     Indication: Product used for unknown indication
     Route: 065

REACTIONS (6)
  - Fatigue [Unknown]
  - Headache [Unknown]
  - Somnolence [Unknown]
  - Hyperhidrosis [Unknown]
  - Tremor [Unknown]
  - Discomfort [Unknown]

NARRATIVE: CASE EVENT DATE: 20211116
